FAERS Safety Report 8352975-6 (Version None)
Quarter: 2012Q2

REPORT INFORMATION
  Report Type: 
  Country: None (occurrence: None)
  Receive Date: 20120511
  Receipt Date: 20111019
  Transmission Date: 20120825
  Serious: No
  Sender: FDA-Public Use
  Company Number: US-GLAXOSMITHKLINE-A0949709A

PATIENT
  Age: 60 Year
  Sex: Male

DRUGS (2)
  1. DYNACIRC CR [Suspect]
     Indication: HYPERTENSION
     Dosage: 5MG PER DAY
     Route: 048
     Dates: start: 20080101
  2. VITAMIN TAB [Concomitant]

REACTIONS (4)
  - MUSCULOSKELETAL PAIN [None]
  - BLOOD PRESSURE INADEQUATELY CONTROLLED [None]
  - MEDICATION RESIDUE [None]
  - ARTHRALGIA [None]
